FAERS Safety Report 5333036-7 (Version None)
Quarter: 2007Q2

REPORT INFORMATION
  Report Type: 
  Country: None (occurrence: None)
  Receive Date: 20070306
  Receipt Date: 20061101
  Transmission Date: 20071010
  Serious: Yes (Hospitalization)
  Sender: FDA-Public Use
  Company Number: A03200606600

PATIENT
  Age: 74 Year
  Sex: Female
  Weight: 62.1428 kg

DRUGS (3)
  1. PLAVIX [Suspect]
     Dosage: 75 MG QD - ORAL A FEW YEARS
     Route: 048
  2. LEVOTHYROXINE SODIUM [Concomitant]
  3. ANTIHYPERTENSIVES NOS [Concomitant]

REACTIONS (4)
  - BLOOD PRESSURE DECREASED [None]
  - CEREBRAL HAEMORRHAGE [None]
  - CEREBROVASCULAR ACCIDENT [None]
  - FEELING ABNORMAL [None]
